FAERS Safety Report 4955452-5 (Version None)
Quarter: 2006Q1

REPORT INFORMATION
  Report Type: 
  Country: None (occurrence: None)
  Receive Date: 20060127
  Receipt Date: 20050617
  Transmission Date: 20060701
  Serious: Yes (Death)
  Sender: FDA-Public Use
  Company Number: 05-06-1071

PATIENT
  Age: 48 Year
  Sex: Female

DRUGS (4)
  1. CLOZAPINE [Suspect]
     Indication: SCHIZOAFFECTIVE DISORDER
     Dosage: 300MG BID, ORAL
     Route: 048
     Dates: start: 20040913, end: 20050427
  2. DITROPAN [Concomitant]
  3. KLONOPIN [Concomitant]
  4. LAMICTAL [Concomitant]

REACTIONS (1)
  - NO ADVERSE EFFECT [None]
